FAERS Safety Report 18061796 (Version 1)
Quarter: 2020Q3

REPORT INFORMATION
  Report Type: Spontaneous
  Country: CZ (occurrence: CZ)
  Receive Date: 20200723
  Receipt Date: 20200723
  Transmission Date: 20201103
  Serious: Yes (Other)
  Sender: FDA-Public Use
  Company Number: CZ-MYLANLABS-2020M1065568

PATIENT
  Sex: Female

DRUGS (8)
  1. KLACID [Suspect]
     Active Substance: CLARITHROMYCIN
     Indication: PURULENT DISCHARGE
  2. GENTAMYCIN                         /00047101/ [Suspect]
     Active Substance: GENTAMICIN
     Indication: LYMPHADENITIS
  3. KLACID [Suspect]
     Active Substance: CLARITHROMYCIN
     Indication: LYMPHADENITIS
     Dosage: UNK
  4. FRAMYKOIN /00321801/ [Suspect]
     Active Substance: BACITRACIN ZINC\NEOMYCIN SULFATE
     Indication: LYMPHADENITIS
     Dosage: UNK
  5. UNASYN [Suspect]
     Active Substance: AMPICILLIN SODIUM\SULBACTAM SODIUM
     Indication: PURULENT DISCHARGE
     Dosage: UNK
     Route: 051
     Dates: start: 2009
  6. UNASYN [Suspect]
     Active Substance: AMPICILLIN SODIUM\SULBACTAM SODIUM
     Indication: LYMPHADENITIS
  7. FRAMYKOIN                          /00321801/ [Suspect]
     Active Substance: BACITRACIN ZINC\NEOMYCIN SULFATE
     Indication: PURULENT DISCHARGE
  8. GENTAMYCIN                         /00047101/ [Suspect]
     Active Substance: GENTAMICIN
     Indication: PURULENT DISCHARGE
     Dosage: UNK
     Route: 051

REACTIONS (1)
  - Drug ineffective [Unknown]

NARRATIVE: CASE EVENT DATE: 2009
